FAERS Safety Report 10511516 (Version 3)
Quarter: 2015Q1

REPORT INFORMATION
  Report Type: Spontaneous
  Country: US (occurrence: US)
  Receive Date: 20141010
  Receipt Date: 20150330
  Transmission Date: 20150720
  Serious: Yes (Hospitalization, Other)
  Sender: FDA-Public Use
  Company Number: US-BAYER-2014-149779

PATIENT
  Age: 31 Year
  Sex: Female
  Weight: 82.54 kg

DRUGS (2)
  1. MIRENA [Suspect]
     Active Substance: LEVONORGESTREL
     Indication: CONTRACEPTION
     Dosage: 20 MCG/24HR, CONT
     Route: 015
     Dates: start: 20100813, end: 20131103
  2. MORPHINE [Concomitant]
     Active Substance: MORPHINE
     Indication: PAIN

REACTIONS (12)
  - Abdominal discomfort [Not Recovered/Not Resolved]
  - Anxiety [None]
  - Ruptured ectopic pregnancy [None]
  - Depression [None]
  - Tubal rupture [None]
  - Abdominal pain [Not Recovered/Not Resolved]
  - Injury [Not Recovered/Not Resolved]
  - Ectopic pregnancy with contraceptive device [None]
  - Device dislocation [Not Recovered/Not Resolved]
  - Procedural pain [Recovered/Resolved]
  - Drug ineffective [None]
  - Emotional distress [None]

NARRATIVE: CASE EVENT DATE: 2013
